FAERS Safety Report 21155479 (Version 2)
Quarter: 2022Q3

REPORT INFORMATION
  Report Type: Spontaneous
  Country: US (occurrence: US)
  Receive Date: 20220801
  Receipt Date: 20220817
  Transmission Date: 20221027
  Serious: Yes (Other)
  Sender: FDA-Public Use
  Company Number: US-009507513-2207USA007613

PATIENT
  Age: 6 Year
  Sex: Male

DRUGS (5)
  1. VARIVAX [Suspect]
     Active Substance: VARICELLA-ZOSTER VIRUS STRAIN OKA/MERCK LIVE ANTIGEN
     Indication: Prophylaxis
     Dosage: .5 MILLILITER
     Route: 058
     Dates: start: 20211111
  2. VARIVAX [Suspect]
     Active Substance: VARICELLA-ZOSTER VIRUS STRAIN OKA/MERCK LIVE ANTIGEN
     Dosage: .5 MILLILITER
     Route: 058
     Dates: start: 20220429
  3. STERILE DILUENT (WATER) [Suspect]
     Active Substance: WATER
     Indication: Prophylaxis
     Dosage: UNK UNK, ONCE
     Route: 058
     Dates: start: 20211111
  4. STERILE DILUENT (WATER) [Suspect]
     Active Substance: WATER
     Dosage: UNK UNK, ONCE
     Route: 058
     Dates: start: 20220429
  5. DIPHTHERIA AND TETANUS TOXOIDS AND ACELLULAR PERTUSSIS VACCINE ADSORBE [Suspect]
     Active Substance: DIPHTHERIA AND TETANUS TOXOIDS AND ACELLULAR PERTUSSIS VACCINE ADSORBED
     Indication: Prophylaxis
     Dosage: UNK
     Dates: start: 20220315

REACTIONS (11)
  - Type III immune complex mediated reaction [Recovered/Resolved]
  - Type III immune complex mediated reaction [Recovered/Resolved]
  - Dermatitis contact [Recovered/Resolved]
  - Dermatitis contact [Recovered/Resolved]
  - Pain in extremity [Recovered/Resolved]
  - Pain in extremity [Recovered/Resolved]
  - Erythema [Recovered/Resolved]
  - Erythema [Recovered/Resolved]
  - Pruritus [Recovered/Resolved]
  - Pruritus [Recovered/Resolved]
  - Product administered to patient of inappropriate age [Unknown]

NARRATIVE: CASE EVENT DATE: 20211111
